FAERS Safety Report 9222396 (Version 1)
Quarter: 2013Q2

REPORT INFORMATION
  Report Type: Spontaneous
  Country: US (occurrence: US)
  Receive Date: 20130410
  Receipt Date: 20130410
  Transmission Date: 20140414
  Serious: No
  Sender: FDA-Public Use
  Company Number: US-JNJFOC-20130318801

PATIENT
  Sex: Female
  Weight: 51.71 kg

DRUGS (6)
  1. DURAGESIC [Suspect]
     Indication: PAIN
     Dosage: TWO 25 UG/HR PATCHES
     Route: 062
     Dates: start: 2012
  2. VITAMIN [Concomitant]
     Indication: PAIN
     Route: 065
  3. OXYCODONE [Concomitant]
     Indication: PAIN
     Route: 065
     Dates: start: 2012
  4. CYMBALTA [Concomitant]
     Indication: PAIN
     Route: 065
  5. TOPAMAX [Concomitant]
     Indication: PAIN
     Route: 048
  6. BACLOFEN [Concomitant]
     Indication: MUSCLE SPASMS
     Route: 065

REACTIONS (6)
  - Wrong technique in drug usage process [Recovered/Resolved]
  - Product quality issue [Recovered/Resolved]
  - Therapeutic response decreased [Not Recovered/Not Resolved]
  - Wrong technique in drug usage process [Recovered/Resolved]
  - Wrong technique in drug usage process [Unknown]
  - Product quality issue [Unknown]
